FAERS Safety Report 5366668-0 (Version None)
Quarter: 2007Q2

REPORT INFORMATION
  Report Type: 
  Country: None (occurrence: None)
  Receive Date: 20070619
  Receipt Date: 20070606
  Transmission Date: 20071010
  Serious: Yes (Life-Threatening, Hospitalization)
  Sender: FDA-Public Use
  Company Number: 430025M07USA

PATIENT
  Age: 22 Year
  Sex: Male

DRUGS (2)
  1. NOVANTRONE [Suspect]
     Indication: ACUTE MYELOID LEUKAEMIA
     Dosage: 16.7 MG, 1 IN 1 DAYS, INTRAVENOUS (NOT OTHERWISE SPECIFIED)
     Route: 042
     Dates: start: 20070514, end: 20070518
  2. ETOPOSIDE [Suspect]
     Dosage: 209 MG, 1 IN 1  DAYS, INTRAVENOUS (NOT OTHERWISE SPECIFIED)
     Route: 042
     Dates: start: 20070514, end: 20070518

REACTIONS (7)
  - CENTRAL LINE INFECTION [None]
  - FEBRILE NEUTROPENIA [None]
  - HYPOTENSION [None]
  - LUNG CONSOLIDATION [None]
  - OXYGEN SATURATION DECREASED [None]
  - PLEURAL EFFUSION [None]
  - PNEUMONIA [None]
